FAERS Safety Report 22389487 (Version 1)
Quarter: 2023Q2

REPORT INFORMATION
  Report Type: Spontaneous
  Country: GB (occurrence: GB)
  Receive Date: 20230531
  Receipt Date: 20230531
  Transmission Date: 20230721
  Serious: Yes (Other)
  Sender: FDA-Public Use
  Company Number: GB-MHRA-MED-202305191804287950-JRVYS

PATIENT
  Sex: Male

DRUGS (3)
  1. ERBITUX [Suspect]
     Active Substance: CETUXIMAB
     Indication: Gastrointestinal carcinoma
     Dosage: 1000 MG, UNK
     Route: 065
     Dates: start: 20230127
  2. FLUOROURACIL [Concomitant]
     Active Substance: FLUOROURACIL
     Indication: Gastrointestinal carcinoma
     Dosage: UNK
     Dates: start: 20230127
  3. IRINOTECAN [Concomitant]
     Active Substance: IRINOTECAN
     Indication: Gastrointestinal carcinoma
     Dosage: UNK
     Dates: start: 20230127

REACTIONS (1)
  - Retinal tear [Not Recovered/Not Resolved]

NARRATIVE: CASE EVENT DATE: 20230414
